FAERS Safety Report 8355154-1 (Version None)
Quarter: 2012Q2

REPORT INFORMATION
  Report Type: 
  Country: None (occurrence: None)
  Receive Date: 20120511
  Receipt Date: 20120503
  Transmission Date: 20120825
  Serious: Yes (Other)
  Sender: FDA-Public Use
  Company Number: CHPA2012US010138

PATIENT
  Sex: Female

DRUGS (3)
  1. PREVACID 24 HR [Suspect]
     Dosage: 7.5 MG, QD
     Route: 048
     Dates: end: 20101201
  2. PREVACID 24 HR [Suspect]
     Dosage: UNK, UNK
  3. PREVACID 24 HR [Suspect]
     Indication: GASTROOESOPHAGEAL REFLUX DISEASE
     Dosage: UNK, UNK
     Route: 064

REACTIONS (9)
  - FOETAL EXPOSURE DURING PREGNANCY [None]
  - WRONG TECHNIQUE IN DRUG USAGE PROCESS [None]
  - OFF LABEL USE [None]
  - OVERDOSE [None]
  - MULTIPLE ALLERGIES [None]
  - GASTROOESOPHAGEAL REFLUX DISEASE [None]
  - INCORRECT DRUG ADMINISTRATION DURATION [None]
  - LACTOSE INTOLERANCE [None]
  - EXPOSURE DURING BREAST FEEDING [None]
